FAERS Safety Report 13960299 (Version 2)
Quarter: 2017Q3

REPORT INFORMATION
  Report Type: Spontaneous
  Country: ES (occurrence: ES)
  Receive Date: 20170912
  Receipt Date: 20170921
  Transmission Date: 20171128
  Serious: Yes (Other)
  Sender: FDA-Public Use
  Company Number: ES-ROCHE-1991836

PATIENT
  Age: 64 Year
  Sex: Male
  Weight: 75 kg

DRUGS (3)
  1. VICTOZA [Concomitant]
     Active Substance: LIRAGLUTIDE
  2. CARVEDILOL. [Concomitant]
     Active Substance: CARVEDILOL
     Route: 065
  3. ESBRIET [Suspect]
     Active Substance: PIRFENIDONE
     Indication: IDIOPATHIC PULMONARY FIBROSIS
     Dosage: TOTAL RECOMMENDED DAILY DOSE?1 TABLET EVERY 8H (1ST WEEK), THEN 2 TABLETS EVERY 8HOURS (2ND WEEK) AN
     Route: 065
     Dates: start: 20161221

REACTIONS (1)
  - Hepatic cirrhosis [Unknown]
